FAERS Safety Report 20564923 (Version 1)
Quarter: 2022Q1

REPORT INFORMATION
  Report Type: Spontaneous
  Country: JP (occurrence: JP)
  Receive Date: 20220308
  Receipt Date: 20220308
  Transmission Date: 20220424
  Serious: Yes (Hospitalization)
  Sender: FDA-Public Use
  Company Number: JP-AMGEN-JPNNI2022037734

PATIENT
  Age: 62 Year
  Sex: Female

DRUGS (8)
  1. BLINCYTO [Suspect]
     Active Substance: BLINATUMOMAB
     Indication: B precursor type acute leukaemia
     Dosage: 5 MICROGRAM/SQ. METER, QD
     Route: 041
     Dates: start: 20181205, end: 20181209
  2. BLINCYTO [Suspect]
     Active Substance: BLINATUMOMAB
     Dosage: 12.8 MICROGRAM/SQ. METER, QD
     Route: 041
     Dates: start: 20181217, end: 20181227
  3. BLINCYTO [Suspect]
     Active Substance: BLINATUMOMAB
     Dosage: 12.8 MICROGRAM/SQ. METER, QD
     Route: 041
     Dates: start: 20190116, end: 20190212
  4. BLINCYTO [Suspect]
     Active Substance: BLINATUMOMAB
     Dosage: 12.8 MICROGRAM/SQ. METER, QD
     Route: 041
     Dates: start: 20190227, end: 20190326
  5. BLINCYTO [Suspect]
     Active Substance: BLINATUMOMAB
     Dosage: UNK
     Route: 041
     Dates: start: 20190911
  6. DECADRON [Concomitant]
     Active Substance: DEXAMETHASONE
     Indication: Prophylaxis
     Dosage: UNK
     Dates: end: 20181207
  7. KENKETSU VENILON I [Concomitant]
     Indication: Prophylaxis
     Dosage: UNK
     Dates: start: 20190225, end: 20190226
  8. CEFEPIME HYDROCHLORIDE [Concomitant]
     Active Substance: CEFEPIME HYDROCHLORIDE
     Indication: Prophylaxis
     Dosage: UNK
     Dates: start: 20190228, end: 20190302

REACTIONS (1)
  - Central nervous system leukaemia [Not Recovered/Not Resolved]
